FAERS Safety Report 7090134-8 (Version None)
Quarter: 2010Q4

REPORT INFORMATION
  Report Type: 
  Country: None (occurrence: None)
  Receive Date: 20101105
  Receipt Date: 20101105
  Transmission Date: 20110411
  Serious: Yes (Hospitalization)
  Sender: FDA-Public Use
  Company Number: None

PATIENT
  Age: 70 Year
  Sex: Female
  Weight: 90.7194 kg

DRUGS (1)
  1. WARFARIN SODIUM [Suspect]
     Indication: ANTICOAGULANT THERAPY
     Dosage: 7.5MG DAILY
     Dates: start: 20100920, end: 20101002

REACTIONS (2)
  - CEREBROVASCULAR ACCIDENT [None]
  - PRODUCT FORMULATION ISSUE [None]
